FAERS Safety Report 12458433 (Version 1)
Quarter: 2016Q2

REPORT INFORMATION
  Report Type: Spontaneous
  Country: US (occurrence: None)
  Receive Date: 20160610
  Receipt Date: 20160610
  Transmission Date: 20160815
  Serious: Yes (Other)
  Sender: FDA-Public Use
  Company Number: None

PATIENT
  Age: 67 Year
  Sex: Female
  Weight: 90.27 kg

DRUGS (9)
  1. LEVOFLOXACIN, 500 MG ZYDUS PHARMACEUTICALS [Suspect]
     Active Substance: LEVOFLOXACIN
     Indication: PNEUMONIA
     Dosage: 1 TABKET(S) ONCE A DAY TAKEN BY MOUTH
     Route: 048
     Dates: start: 20140301
  2. PREDNISONE. [Concomitant]
     Active Substance: PREDNISONE
  3. LISINOPRIL. [Concomitant]
     Active Substance: LISINOPRIL
  4. SHAKLEE MULTI-VITAMIN [Concomitant]
  5. GABAPENTIN. [Concomitant]
     Active Substance: GABAPENTIN
  6. CALCIUM W/VITAMIN D [Concomitant]
     Active Substance: CALCIUM\VITAMIN D
  7. TUMERIC TABLETS [Concomitant]
  8. TART CHERRY CAPSULES [Concomitant]
  9. ALPHA LIPO0IC ACID CAPSULES [Concomitant]

REACTIONS (16)
  - Asthenia [None]
  - Myositis [None]
  - Restlessness [None]
  - Myalgia [None]
  - Balance disorder [None]
  - Malaise [None]
  - Pain [None]
  - Diarrhoea [None]
  - Urticaria [None]
  - Neuropathy peripheral [None]
  - Arthralgia [None]
  - Tendonitis [None]
  - Peripheral swelling [None]
  - Vision blurred [None]
  - Alopecia [None]
  - Skin exfoliation [None]

NARRATIVE: CASE EVENT DATE: 20140301
